FAERS Safety Report 4978913-1 (Version None)
Quarter: 2006Q2

REPORT INFORMATION
  Report Type: 
  Country: None (occurrence: None)
  Receive Date: 20060417
  Receipt Date: 20060406
  Transmission Date: 20061013
  Serious: Yes (Hospitalization, Other)
  Sender: FDA-Public Use
  Company Number: 2005026394

PATIENT
  Age: 59 Year
  Sex: Male
  Weight: 91.6 kg

DRUGS (2)
  1. GENOTROPIN [Suspect]
     Indication: HYPOPITUITARISM
     Dosage: 0.5 MG (0.5 MG, 1 IN 1 D)
     Dates: start: 20020111, end: 20040114
  2. GENOTROPIN [Suspect]
     Indication: HYPOPITUITARISM
     Dosage: 0.5 MG (0.5 MG, 1 IN 1 D)
     Dates: start: 20040114, end: 20050112

REACTIONS (4)
  - PITUITARY TUMOUR BENIGN [None]
  - PITUITARY TUMOUR RECURRENT [None]
  - REFUSAL OF TREATMENT BY PATIENT [None]
  - SURGICAL PROCEDURE REPEATED [None]
